FAERS Safety Report 20838027 (Version 1)
Quarter: 2022Q2

REPORT INFORMATION
  Report Type: Spontaneous
  Country: US (occurrence: US)
  Receive Date: 20220517
  Receipt Date: 20220517
  Transmission Date: 20220721
  Serious: No
  Sender: FDA-Public Use
  Company Number: US-ALLERGAN-2143368US

PATIENT
  Age: 63 Year
  Sex: Female

DRUGS (1)
  1. KYBELLA [Suspect]
     Active Substance: DEOXYCHOLIC ACID
     Indication: Product used for unknown indication
     Dosage: UNK UNK, SINGLE
     Dates: start: 20211115

REACTIONS (4)
  - Hypoaesthesia [Unknown]
  - Sensory disturbance [Unknown]
  - Injection site nodule [Unknown]
  - Injection site swelling [Unknown]
